FAERS Safety Report 8786062 (Version 1)
Quarter: 2012Q4

REPORT INFORMATION
  Report Type: 
  Country: US (occurrence: US)
  Receive Date: 20120914
  Receipt Date: 20120914
  Transmission Date: 20130627
  Serious: Yes (Hospitalization)
  Sender: FDA-Public Use
  Company Number: US-TEVA-358690USA

PATIENT
  Age: 36 Year
  Sex: Male

DRUGS (10)
  1. DOXORUBICIN [Suspect]
     Indication: B-CELL LYMPHOMA
     Route: 065
  2. PREDNISOLONE [Suspect]
     Indication: B-CELL LYMPHOMA
     Route: 065
  3. VINCRISTINE [Suspect]
     Indication: B-CELL LYMPHOMA
     Route: 065
  4. RITUXIMAB [Suspect]
     Indication: B-CELL LYMPHOMA
     Route: 065
  5. RITUXIMAB [Suspect]
     Indication: B-CELL LYMPHOMA
     Dosage: maintenance with rituximab every 3 months
     Route: 065
  6. CYCLOPHOSPHAMIDE [Suspect]
     Route: 065
  7. DIPHENHYDRAMINE [Concomitant]
     Indication: MENINGITIS ASEPTIC
     Dosage: 25mg
     Route: 065
  8. HYDROCORTISONE [Concomitant]
     Indication: MENINGITIS ASEPTIC
     Dosage: 50mg
     Route: 065
  9. IBUPROFEN [Concomitant]
     Indication: MENINGITIS ASEPTIC
     Route: 065
  10. PARACETAMOL [Concomitant]
     Indication: MENINGITIS ASEPTIC
     Dosage: 650mg
     Route: 065

REACTIONS (7)
  - Meningitis aseptic [Recovered/Resolved]
  - Meningitis enteroviral [Recovered/Resolved]
  - Hypogammaglobulinaemia [Recovered/Resolved]
  - Back pain [Unknown]
  - Fatigue [None]
  - Pain [None]
  - Oropharyngeal pain [None]
